FAERS Safety Report 7401365-9 (Version None)
Quarter: 2011Q2

REPORT INFORMATION
  Report Type: 
  Country: None (occurrence: None)
  Receive Date: 20110407
  Receipt Date: 20110329
  Transmission Date: 20111010
  Serious: Yes (Hospitalization, Other)
  Sender: FDA-Public Use
  Company Number: US-MERCK-1006USA01069

PATIENT
  Age: 64 Year
  Sex: Female
  Weight: 66 kg

DRUGS (4)
  1. CALCIUM CARBONATE [Concomitant]
     Route: 065
     Dates: start: 20000101
  2. FOSAMAX [Suspect]
     Indication: OSTEOPOROSIS
     Route: 048
     Dates: start: 20020515, end: 20080101
  3. FOSAMAX [Suspect]
     Indication: OSTEOPENIA
     Route: 048
     Dates: start: 20020515, end: 20080101
  4. ALENDRONATE SODIUM [Suspect]
     Indication: OSTEOPOROSIS
     Route: 048
     Dates: start: 20080509, end: 20100314

REACTIONS (23)
  - CORONARY ARTERY BYPASS [None]
  - FRACTURE DELAYED UNION [None]
  - INTESTINAL FUNCTIONAL DISORDER [None]
  - TENOSYNOVITIS [None]
  - STRESS FRACTURE [None]
  - OSTEOARTHRITIS [None]
  - FALL [None]
  - NEPHROPATHY [None]
  - NEPHROLITHIASIS [None]
  - INCISION SITE INFECTION [None]
  - CATARACT [None]
  - BREAST CALCIFICATIONS [None]
  - TOOTH DISORDER [None]
  - ORAL DISORDER [None]
  - HYPERKERATOSIS [None]
  - CHEST PAIN [None]
  - HYPERLIPIDAEMIA [None]
  - URINARY TRACT INFECTION [None]
  - SPINAL DISORDER [None]
  - BRONCHITIS [None]
  - CORONARY ARTERY DISEASE [None]
  - FEMUR FRACTURE [None]
  - LOW TURNOVER OSTEOPATHY [None]
